FAERS Safety Report 8643974 (Version 6)
Quarter: 2013Q1

REPORT INFORMATION
  Report Type: Report from Study
  Country: NL (occurrence: NL)
  Receive Date: 20120629
  Receipt Date: 20130312
  Transmission Date: 20140127
  Serious: Yes (Other)
  Sender: FDA-Public Use
  Company Number: NL-CELGENEUS-114-C5013-12062702

PATIENT
  Age: 63 Year
  Sex: Male
  Weight: 114.7 kg

DRUGS (19)
  1. CC-5013 [Suspect]
     Indication: PROSTATE CANCER
     Dosage: 25 MILLIGRAM
     Route: 048
     Dates: start: 20110328, end: 20111124
  2. DOCETAXEL [Suspect]
     Indication: PROSTATE CANCER
     Dosage: 7.1429 MILLIGRAM
     Route: 041
     Dates: start: 20110328, end: 20110815
  3. PREDNISONE [Suspect]
     Indication: PROSTATE CANCER
     Route: 048
     Dates: start: 20110318, end: 20120119
  4. METOPROLOL TARTRATE [Concomitant]
     Indication: HYPERTENSION
     Dosage: 200 MILLIGRAM
     Route: 048
     Dates: start: 199806
  5. ZOLADEX [Concomitant]
     Indication: PROSTATE CANCER
     Dosage: .12 MILLIGRAM
     Route: 058
     Dates: start: 200409
  6. CAPTOPRIL [Concomitant]
     Indication: HYPERTENSION
     Dosage: 100 MILLIGRAM
     Route: 048
     Dates: start: 199807
  7. NIFEDIPINE [Concomitant]
     Indication: HYPERTENSION
     Dosage: 60 MILLIGRAM
     Route: 048
     Dates: start: 200309
  8. PANTOPRAZOL [Concomitant]
     Indication: GASTRITIS PROPHYLAXIS
     Dosage: 20 MILLIGRAM
     Route: 048
     Dates: start: 201006
  9. SIMVASTATINE [Concomitant]
     Indication: HYPERCHOLESTEROLAEMIA
     Dosage: 40 MILLIGRAM
     Route: 048
     Dates: start: 201005
  10. BETAHISTINE [Concomitant]
     Indication: VERTIGO
     Dosage: 48 MILLIGRAM
     Route: 048
     Dates: start: 20101224
  11. CLOPIDOGREL [Concomitant]
     Indication: HYPERTENSION
     Dosage: 75 MILLIGRAM
     Route: 048
     Dates: start: 201006
  12. CLOPIDOGREL [Concomitant]
     Indication: TRANSIENT ISCHAEMIC ATTACK
     Route: 065
  13. PARACETAMOL [Concomitant]
     Indication: PAIN
     Dosage: 3000 MILLIGRAM
     Route: 048
     Dates: start: 20110411
  14. CODEINE [Concomitant]
     Indication: COUGH
     Dosage: 60 MILLIGRAM
     Route: 048
     Dates: start: 20110610
  15. ATROVENT [Concomitant]
     Indication: BRONCHOSPASM
     Dosage: 40 MICROGRAM
     Route: 055
     Dates: start: 20110629
  16. NASONEX [Concomitant]
     Indication: BRONCHOSPASM
     Dosage: 50 MICROGRAM
     Route: 055
     Dates: start: 20110629
  17. VITAMIN D [Concomitant]
     Indication: HYPOVITAMINOSIS
     Dosage: 1666.6667
     Route: 065
     Dates: start: 20120306
  18. ACETYLCYSTEINE [Concomitant]
     Indication: NASOPHARYNGITIS
     Dosage: 600 MILLIGRAM
     Route: 048
     Dates: start: 20120306
  19. ULCOGANT [Concomitant]
     Indication: GASTRITIS PROPHYLAXIS
     Dosage: 900 MILLIGRAM
     Route: 048
     Dates: start: 20120306

REACTIONS (1)
  - Squamous cell carcinoma of the tongue [Recovered/Resolved]
